FAERS Safety Report 8011108-6 (Version None)
Quarter: 2011Q4

REPORT INFORMATION
  Report Type: 
  Country: None (occurrence: None)
  Receive Date: 20111228
  Receipt Date: 20111219
  Transmission Date: 20120403
  Serious: Yes (Other)
  Sender: FDA-Public Use
  Company Number: US-ROCHE-GNE323925

PATIENT
  Sex: Female
  Weight: 70.37 kg

DRUGS (13)
  1. SINGULAIR [Concomitant]
     Indication: PRODUCT USED FOR UNKNOWN INDICATION
  2. XOPENEX [Concomitant]
     Indication: PRODUCT USED FOR UNKNOWN INDICATION
  3. XOLAIR [Suspect]
     Dates: start: 20110221
  4. DULERA ORAL INHALATION [Concomitant]
     Indication: PRODUCT USED FOR UNKNOWN INDICATION
  5. ZYRTEC [Concomitant]
     Indication: PRODUCT USED FOR UNKNOWN INDICATION
  6. NASONEX [Concomitant]
     Indication: PRODUCT USED FOR UNKNOWN INDICATION
  7. ASPIRIN [Concomitant]
  8. XOLAIR [Suspect]
     Indication: ASTHMA
     Dosage: 300 MG, 1/MONTH
     Route: 058
     Dates: start: 20110201
  9. NIASPAN [Concomitant]
     Indication: PRODUCT USED FOR UNKNOWN INDICATION
  10. AMLODIPINE [Concomitant]
     Indication: PRODUCT USED FOR UNKNOWN INDICATION
  11. RAMIPRIL [Concomitant]
  12. ASTEPRO [Concomitant]
     Indication: PRODUCT USED FOR UNKNOWN INDICATION
  13. CYMBALTA [Concomitant]

REACTIONS (6)
  - PRURITUS GENERALISED [None]
  - DYSPNOEA [None]
  - ANAPHYLACTIC REACTION [None]
  - DIZZINESS [None]
  - HYPERTENSION [None]
  - ABDOMINAL PAIN [None]
